FAERS Safety Report 4318649-3 (Version None)
Quarter: 2004Q1

REPORT INFORMATION
  Report Type: 
  Country: None (occurrence: None)
  Receive Date: 20040315
  Receipt Date: 20040302
  Transmission Date: 20041129
  Serious: No
  Sender: FDA-Public Use
  Company Number: 2004012403

PATIENT

DRUGS (2)
  1. NEURONTIN [Suspect]
     Indication: EPILEPSY
     Dosage: 2400 MG (QID), ORAL
     Route: 048
  2. LAMOTRIGINE [Concomitant]

REACTIONS (1)
  - LABORATORY TEST INTERFERENCE [None]
